FAERS Safety Report 10609940 (Version 1)
Quarter: 2014Q4

REPORT INFORMATION
  Report Type: Spontaneous
  Country: US (occurrence: None)
  Receive Date: 20141121
  Receipt Date: 20141121
  Transmission Date: 20150529
  Serious: Yes (Hospitalization)
  Sender: FDA-Public Use
  Company Number: PR 2111

PATIENT
  Age: 74 Year
  Sex: Male

DRUGS (1)
  1. ZIOPTAN [Suspect]
     Active Substance: TAFLUPROST
     Indication: NORMAL TENSION GLAUCOMA
     Dosage: 2 DROPS, FREQUENCY/DAY
     Dates: start: 20090402, end: 20100621

REACTIONS (3)
  - Malignant neoplasm progression [None]
  - Lung cancer metastatic [None]
  - Metastases to bone [None]

NARRATIVE: CASE EVENT DATE: 20100621
